FAERS Safety Report 12391683 (Version 7)
Quarter: 2017Q1

REPORT INFORMATION
  Report Type: Report from Study
  Country: CA (occurrence: CA)
  Receive Date: 20160522
  Receipt Date: 20170323
  Transmission Date: 20170428
  Serious: Yes (Other)
  Sender: FDA-Public Use
  Company Number: PHHY2014CA007639

PATIENT
  Age: 81 Year
  Sex: Male

DRUGS (2)
  1. SANDOSTATIN [Suspect]
     Active Substance: OCTREOTIDE ACETATE
     Indication: NEUROENDOCRINE TUMOUR
     Route: 058
     Dates: start: 20131210, end: 2014
  2. SANDOSTATIN LAR DEPOT [Suspect]
     Active Substance: OCTREOTIDE ACETATE
     Indication: NEUROENDOCRINE TUMOUR
     Dosage: 30 MG, QMO (EVERY 4 WEEKS)
     Route: 030
     Dates: start: 20140117

REACTIONS (11)
  - Blood pressure systolic increased [Unknown]
  - Loss of consciousness [Unknown]
  - Bradyphrenia [Unknown]
  - Heart rate decreased [Unknown]
  - Vomiting projectile [Unknown]
  - Blood pressure increased [Unknown]
  - Nausea [Unknown]
  - Syncope [Unknown]
  - Body temperature decreased [Unknown]
  - Incontinence [Unknown]
  - Needle issue [Unknown]

NARRATIVE: CASE EVENT DATE: 20140117
